FAERS Safety Report 9335042 (Version 1)
Quarter: 2013Q2

REPORT INFORMATION
  Report Type: Spontaneous
  Country: US (occurrence: US)
  Receive Date: 20130606
  Receipt Date: 20130606
  Transmission Date: 20140414
  Serious: No
  Sender: FDA-Public Use
  Company Number: US-AMGEN-USASP2013027451

PATIENT
  Age: 84 Year
  Sex: Female
  Weight: 60.32 kg

DRUGS (7)
  1. PROLIA [Suspect]
     Indication: OSTEOPOROSIS POSTMENOPAUSAL
     Dosage: 1 MG, UNK
     Dates: start: 20121114, end: 20130121
  2. ANTIBIOTICS [Concomitant]
  3. PREDNISONE [Concomitant]
     Indication: POLYMYALGIA RHEUMATICA
     Dosage: 2 MG, QD
     Dates: start: 20111101
  4. BENICAR [Concomitant]
     Indication: HYPERTENSION
     Dosage: 20 MG, QD
     Dates: start: 20100520
  5. PREMARIN [Concomitant]
     Dosage: 1 MG, QD
     Dates: start: 20110207
  6. CALCIUM + VITAMIN D [Concomitant]
     Indication: OSTEOPOROSIS
     Dosage: UNK UNK, BID
     Dates: start: 20130121
  7. VITAMIN D                          /00107901/ [Concomitant]
     Indication: OSTEOPOROSIS
     Dosage: 400 IU, BID
     Dates: start: 20130121

REACTIONS (4)
  - Mobility decreased [Unknown]
  - Headache [Recovered/Resolved]
  - Neck pain [Recovered/Resolved]
  - Musculoskeletal pain [Unknown]
